FAERS Safety Report 6726832-2 (Version None)
Quarter: 2010Q2

REPORT INFORMATION
  Report Type: 
  Country: None (occurrence: None)
  Receive Date: 20100516
  Receipt Date: 20100507
  Transmission Date: 20101027
  Serious: Yes (Hospitalization)
  Sender: FDA-Public Use
  Company Number: US-JNJFOC-20100502527

PATIENT
  Sex: Male

DRUGS (10)
  1. DURAGESIC-100 [Suspect]
     Indication: BACK PAIN
     Route: 062
  2. FENTANYL CITRATE [Suspect]
     Indication: BACK PAIN
     Route: 062
  3. FENTANYL CITRATE [Suspect]
     Dosage: NDC 0781-7244-55
     Route: 062
  4. METFORMIN HYDROCHLORIDE [Concomitant]
     Indication: DIABETES MELLITUS
     Route: 048
  5. SIMVASTATIN [Concomitant]
     Indication: BLOOD CHOLESTEROL INCREASED
     Route: 048
  6. AMITRIPTYLINE [Concomitant]
     Indication: INSOMNIA
     Route: 048
  7. AMITRIPTYLINE [Concomitant]
     Dosage: IN MORNING AS NEEDED
     Route: 048
  8. AMITRIPTYLINE [Concomitant]
     Indication: DEPRESSION
     Route: 048
  9. AMITRIPTYLINE [Concomitant]
     Dosage: IN MORNING AS NEEDED
     Route: 048
  10. LISINOPRIL [Concomitant]
     Route: 048

REACTIONS (10)
  - AORTIC DISORDER [None]
  - APPLICATION SITE RASH [None]
  - BACK PAIN [None]
  - HYPOPHAGIA [None]
  - INSOMNIA [None]
  - PERIPHERAL VASCULAR DISORDER [None]
  - PRODUCT ADHESION ISSUE [None]
  - SKIN DISCOLOURATION [None]
  - WITHDRAWAL SYNDROME [None]
  - WRONG TECHNIQUE IN DRUG USAGE PROCESS [None]
